FAERS Safety Report 6494333-5 (Version None)
Quarter: 2009Q4

REPORT INFORMATION
  Report Type: 
  Country: None (occurrence: None)
  Receive Date: 20091214
  Receipt Date: 20090209
  Transmission Date: 20100525
  Serious: No
  Sender: FDA-Public Use
  Company Number: US-BRISTOL-MYERS SQUIBB COMPANY-14499065

PATIENT
  Sex: Female

DRUGS (1)
  1. ABILIFY [Suspect]
     Indication: BIPOLAR DISORDER
     Dosage: DURATION 5-6 MONTHS-STOPPED;RESTARTED

REACTIONS (4)
  - ALCOHOLISM [None]
  - DRUG INEFFECTIVE [None]
  - LIBIDO INCREASED [None]
  - MANIA [None]
